FAERS Safety Report 8508865-9 (Version None)
Quarter: 2012Q3

REPORT INFORMATION
  Report Type: 
  Country: None (occurrence: None)
  Receive Date: 20120713
  Receipt Date: 20120706
  Transmission Date: 20120928
  Serious: No
  Sender: FDA-Public Use
  Company Number: US-PFIZER INC-2012163441

PATIENT
  Sex: Female

DRUGS (8)
  1. IBUPROFEN [Suspect]
     Dosage: UNK
  2. DARVOCET [Suspect]
     Dosage: UNK
  3. DEMEROL [Suspect]
     Dosage: UNK
  4. CELEBREX [Suspect]
     Indication: ARTHRITIS
     Dosage: UNK
  5. DIAZEPAM [Suspect]
     Dosage: 10 MG, UNK
  6. MACRODANTIN [Suspect]
     Dosage: UNK
  7. CODEINE [Suspect]
     Dosage: UNK
  8. CLINDAMYCIN HCL [Suspect]
     Dosage: UNK

REACTIONS (2)
  - DRUG HYPERSENSITIVITY [None]
  - ALLERGY TO CHEMICALS [None]
